FAERS Safety Report 7639048-2 (Version None)
Quarter: 2011Q3

REPORT INFORMATION
  Report Type: 
  Country: None (occurrence: None)
  Receive Date: 20110727
  Receipt Date: 20110708
  Transmission Date: 20111222
  Serious: No
  Sender: FDA-Public Use
  Company Number: US-ROXANE LABORATORIES, INC.-2011-RO-00998RO

PATIENT
  Age: 67 Year
  Sex: Male

DRUGS (1)
  1. FLUTICASONE PROPIONATE [Suspect]
     Indication: ALLERGIC SINUSITIS
     Route: 045
     Dates: start: 20110101

REACTIONS (1)
  - BLOOD PRESSURE FLUCTUATION [None]
